FAERS Safety Report 6007194-5 (Version None)
Quarter: 2008Q4

REPORT INFORMATION
  Report Type: 
  Country: None (occurrence: None)
  Receive Date: 20081217
  Receipt Date: 20080220
  Transmission Date: 20090506
  Serious: No
  Sender: FDA-Public Use
  Company Number: US-ASTRAZENECA-2008UW03635

PATIENT
  Age: 53 Year
  Sex: Male
  Weight: 100.2 kg

DRUGS (4)
  1. CRESTOR [Suspect]
     Indication: BLOOD CHOLESTEROL INCREASED
     Route: 048
     Dates: start: 20070201
  2. ZETIA [Concomitant]
  3. ACTOS [Concomitant]
  4. MICARDIS [Concomitant]

REACTIONS (6)
  - BLOOD CHOLESTEROL INCREASED [None]
  - DRUG INEFFECTIVE [None]
  - MUSCLE DISORDER [None]
  - MUSCLE SPASMS [None]
  - MYALGIA [None]
  - MYOSITIS [None]
